FAERS Safety Report 14829959 (Version 1)
Quarter: 2018Q2

REPORT INFORMATION
  Report Type: Spontaneous
  Country: US (occurrence: US)
  Receive Date: 20180430
  Receipt Date: 20180430
  Transmission Date: 20180711
  Serious: Yes (Hospitalization)
  Sender: FDA-Public Use
  Company Number: US-DSJP-DSU-2018-116903

PATIENT

DRUGS (3)
  1. WELCHOL [Suspect]
     Active Substance: COLESEVELAM HYDROCHLORIDE
     Indication: BLOOD CHOLESTEROL INCREASED
     Dosage: 3.75 G (ONE PACKET INTERMITTENTLY), UNK
     Route: 048
     Dates: start: 201705, end: 201802
  2. WELCHOL [Suspect]
     Active Substance: COLESEVELAM HYDROCHLORIDE
     Indication: BLOOD CHOLESTEROL INCREASED
     Dosage: UNK
     Route: 048
     Dates: start: 201804, end: 201804
  3. NEURONTIN [Concomitant]
     Active Substance: GABAPENTIN
     Indication: CARPAL TUNNEL SYNDROME
     Dosage: UNK
     Route: 048

REACTIONS (5)
  - Hip arthroplasty [Unknown]
  - Carpal tunnel decompression [Unknown]
  - Treatment noncompliance [Recovered/Resolved]
  - Dysgeusia [Recovered/Resolved]
  - Nausea [Recovered/Resolved]

NARRATIVE: CASE EVENT DATE: 2017
